FAERS Safety Report 14415691 (Version 4)
Quarter: 2018Q3

REPORT INFORMATION
  Report Type: Spontaneous
  Country: US (occurrence: US)
  Receive Date: 20180122
  Receipt Date: 20180912
  Transmission Date: 20181010
  Serious: No
  Sender: FDA-Public Use
  Company Number: US-NEUROCRINE BIOSCIENCES INC.-2017NBI01774

PATIENT
  Age: 43 Year
  Sex: Female
  Weight: 65 kg

DRUGS (8)
  1. ZYRTEC [Concomitant]
     Active Substance: CETIRIZINE HYDROCHLORIDE
  2. INGREZZA [Suspect]
     Active Substance: VALBENAZINE
     Route: 048
     Dates: start: 20171201
  3. LAMICTAL [Concomitant]
     Active Substance: LAMOTRIGINE
  4. LEXAPRO [Concomitant]
     Active Substance: ESCITALOPRAM OXALATE
  5. KEPPRA [Concomitant]
     Active Substance: LEVETIRACETAM
  6. INGREZZA [Suspect]
     Active Substance: VALBENAZINE
     Indication: PRODUCT USED FOR UNKNOWN INDICATION
     Route: 048
     Dates: start: 20171030, end: 20171129
  7. CLONAZEPAM. [Concomitant]
     Active Substance: CLONAZEPAM
  8. BACLOFEN. [Concomitant]
     Active Substance: BACLOFEN

REACTIONS (2)
  - Drug effect decreased [None]
  - Urticaria [Recovered/Resolved]

NARRATIVE: CASE EVENT DATE: 20171128
